FAERS Safety Report 4528819-7 (Version None)
Quarter: 2004Q4

REPORT INFORMATION
  Report Type: 
  Country: None (occurrence: None)
  Receive Date: 20041216
  Receipt Date: 20040629
  Transmission Date: 20050328
  Serious: Yes (Other)
  Sender: FDA-Public Use
  Company Number: JP-GLAXOSMITHKLINE-B0337888A

PATIENT
  Age: 51 Year
  Sex: Female

DRUGS (2)
  1. FLOLAN [Suspect]
     Indication: PULMONARY HYPERTENSION
     Route: 042
     Dates: start: 19980201
  2. VIAGRA [Concomitant]
     Indication: PULMONARY HYPERTENSION
     Route: 048

REACTIONS (2)
  - EPISTAXIS [None]
  - GENITAL HAEMORRHAGE [None]
